FAERS Safety Report 8617387-6 (Version None)
Quarter: 2012Q3

REPORT INFORMATION
  Report Type: 
  Country: None (occurrence: None)
  Receive Date: 20120823
  Receipt Date: 20120608
  Transmission Date: 20120928
  Serious: No
  Sender: FDA-Public Use
  Company Number: US-009507513-2012SP001789

PATIENT

DRUGS (1)
  1. DR. SCHOLL'S FREEZE AWAY COMMON + PLANTAR WART REMOVER [Suspect]
     Indication: SKIN PAPILLOMA

REACTIONS (2)
  - THERAPEUTIC PRODUCT INEFFECTIVE [None]
  - CONDITION AGGRAVATED [None]
